FAERS Safety Report 14314094 (Version 1)
Quarter: 2017Q4

REPORT INFORMATION
  Report Type: Spontaneous
  Country: US (occurrence: US)
  Receive Date: 20171221
  Receipt Date: 20171221
  Transmission Date: 20180321
  Serious: No
  Sender: FDA-Public Use
  Company Number: US-PFIZER INC-2017535842

PATIENT
  Age: 70 Year
  Sex: Male

DRUGS (7)
  1. VINBLASTINE [Suspect]
     Active Substance: VINBLASTINE
     Indication: TRANSITIONAL CELL CANCER OF THE RENAL PELVIS AND URETER
     Dosage: UNK
     Dates: start: 2017
  2. DOXORUBICIN HCL [Suspect]
     Active Substance: DOXORUBICIN HYDROCHLORIDE
     Indication: TRANSITIONAL CELL CANCER OF THE RENAL PELVIS AND URETER
     Dosage: UNK
     Dates: start: 2017
  3. METHOTREXATE SODIUM. [Suspect]
     Active Substance: METHOTREXATE SODIUM
     Indication: TRANSITIONAL CELL CANCER OF THE RENAL PELVIS AND URETER
     Dosage: UNK
     Dates: start: 2017
  4. TAXOL [Concomitant]
     Active Substance: PACLITAXEL
     Indication: TRANSITIONAL CELL CANCER OF THE RENAL PELVIS AND URETER
     Dosage: UNK
     Dates: start: 2017
  5. ENFORTUMAB VEDOTIN [Concomitant]
     Indication: TRANSITIONAL CELL CANCER OF THE RENAL PELVIS AND URETER
     Dosage: UNK
     Dates: start: 2017
  6. CISPLATIN. [Suspect]
     Active Substance: CISPLATIN
     Indication: TRANSITIONAL CELL CANCER OF THE RENAL PELVIS AND URETER
     Dosage: UNK
     Dates: start: 2017
  7. TECENTRIQ [Concomitant]
     Active Substance: ATEZOLIZUMAB
     Indication: TRANSITIONAL CELL CANCER OF THE RENAL PELVIS AND URETER
     Dosage: UNK
     Dates: start: 2017

REACTIONS (2)
  - Neoplasm recurrence [Unknown]
  - Neoplasm progression [Unknown]

NARRATIVE: CASE EVENT DATE: 2017
